FAERS Safety Report 19240081 (Version 3)
Quarter: 2021Q2

REPORT INFORMATION
  Report Type: Report from Study
  Country: CA (occurrence: CA)
  Receive Date: 20210511
  Receipt Date: 20210608
  Transmission Date: 20210717
  Serious: Yes (Other)
  Sender: FDA-Public Use
  Company Number: CA-MTPC-MTDA2021-0011657

PATIENT
  Age: 62 Year
  Sex: Female

DRUGS (4)
  1. EDARAVONE INJ [Suspect]
     Active Substance: EDARAVONE
     Dosage: 60 MILLIGRAM, QD 10 DAYS OUT OF 14 ON, 14 OFF
     Route: 065
     Dates: start: 20210531
  2. EDARAVONE INJ [Suspect]
     Active Substance: EDARAVONE
     Indication: AMYOTROPHIC LATERAL SCLEROSIS
     Dosage: UNK
     Route: 065
     Dates: start: 20200407
  3. RILUZOLE. [Concomitant]
     Active Substance: RILUZOLE
     Indication: PRODUCT USED FOR UNKNOWN INDICATION
     Dosage: 50 MILLIGRAM, BID
     Route: 048
     Dates: start: 202006
  4. EDARAVONE INJ [Suspect]
     Active Substance: EDARAVONE
     Dosage: 60 MILLIGRAM, QD 10 DAYS OUT OF 14 ON, 14 OFF
     Route: 065
     Dates: start: 20210503

REACTIONS (2)
  - Periarthritis [Unknown]
  - Nephrolithiasis [Recovered/Resolved]

NARRATIVE: CASE EVENT DATE: 20210418
